FAERS Safety Report 10416367 (Version 1)
Quarter: 2014Q3

REPORT INFORMATION
  Report Type: Spontaneous
  Country: US (occurrence: US)
  Receive Date: 20140828
  Receipt Date: 20140828
  Transmission Date: 20150326
  Serious: Yes (Death)
  Sender: FDA-Public Use
  Company Number: US-BAYER-2014-123369

PATIENT
  Sex: Male

DRUGS (1)
  1. CAMPHO-PHENIQUE ANTISEPTIC LIQUID [Suspect]
     Active Substance: CAMPHORATED PHENOL
     Indication: HYPERKERATOSIS
     Dosage: 1 DOSE, PRN
     Route: 048

REACTIONS (3)
  - Medication error [Unknown]
  - Pancreatic carcinoma [Fatal]
  - Therapeutic response changed [Unknown]
